FAERS Safety Report 4897253-2 (Version None)
Quarter: 2005Q4

REPORT INFORMATION
  Report Type: 
  Country: None (occurrence: None)
  Receive Date: 20051223
  Receipt Date: 20050922
  Transmission Date: 20060501
  Serious: No
  Sender: FDA-Public Use
  Company Number: 05P-163-0311828-00

PATIENT
  Age: 72 Year
  Sex: Female
  Weight: 60.3284 kg

DRUGS (4)
  1. HUMIRA [Suspect]
     Indication: RHEUMATOID ARTHRITIS
     Dosage: SEE IMAGE
     Route: 058
     Dates: start: 20041201, end: 20050921
  2. HUMIRA [Suspect]
     Indication: RHEUMATOID ARTHRITIS
     Dosage: SEE IMAGE
     Route: 058
     Dates: start: 20050922
  3. VITAMINS [Concomitant]
  4. FOLIC ACID [Concomitant]

REACTIONS (2)
  - RHEUMATOID ARTHRITIS [None]
  - URINARY TRACT INFECTION [None]
